FAERS Safety Report 25960753 (Version 2)
Quarter: 2025Q4

REPORT INFORMATION
  Report Type: Spontaneous
  Country: EU (occurrence: EU)
  Receive Date: 20251027
  Receipt Date: 20251101
  Transmission Date: 20260118
  Serious: Yes (Other)
  Sender: AUROBINDO
  Company Number: EU-SEMPA-2025-008480

PATIENT
  Age: 24 Year
  Sex: Female

DRUGS (3)
  1. SERTRALINE [Suspect]
     Active Substance: SERTRALINE HYDROCHLORIDE
     Indication: Depression
     Dosage: 150 MILLIGRAM, ONCE A DAY
     Route: 065
     Dates: start: 20160101, end: 2022
  2. SERTRALINE [Suspect]
     Active Substance: SERTRALINE HYDROCHLORIDE
     Dosage: 50 MILLIGRAM, ONCE A DAY
     Route: 065
     Dates: start: 2022
  3. MIRTAZAPINE [Concomitant]
     Active Substance: MIRTAZAPINE
     Indication: Product used for unknown indication
     Dosage: 15 MILLIGRAM
     Route: 065

REACTIONS (7)
  - Multiple acyl-coenzyme A dehydrogenase deficiency [Unknown]
  - Hepatic enzyme increased [Unknown]
  - Carnitine deficiency [Unknown]
  - Vitamin B12 deficiency [Unknown]
  - Hypokalaemia [Unknown]
  - Blood folate decreased [Unknown]
  - CSF test abnormal [Unknown]

NARRATIVE: CASE EVENT DATE: 20220101
